FAERS Safety Report 14861682 (Version 2)
Quarter: 2018Q2

REPORT INFORMATION
  Report Type: Report from Study
  Country: US (occurrence: US)
  Receive Date: 20180508
  Receipt Date: 20180508
  Transmission Date: 20180711
  Serious: Yes (Other)
  Sender: FDA-Public Use
  Company Number: PHEH2018US016221

PATIENT
  Sex: Male

DRUGS (2)
  1. ENTRESTO [Suspect]
     Active Substance: SACUBITRIL\VALSARTAN
     Indication: PRODUCT USED FOR UNKNOWN INDICATION
     Route: 065
  2. AMIODARONE [Suspect]
     Active Substance: AMIODARONE
     Indication: PRODUCT USED FOR UNKNOWN INDICATION
     Route: 065

REACTIONS (8)
  - Blood potassium increased [Unknown]
  - Weight decreased [Unknown]
  - Diabetes mellitus [Unknown]
  - Renal failure [Unknown]
  - Blood creatine increased [Unknown]
  - Thyroid disorder [Unknown]
  - Glycosylated haemoglobin increased [Unknown]
  - Back disorder [Unknown]
